FAERS Safety Report 21840417 (Version 1)
Quarter: 2023Q1

REPORT INFORMATION
  Report Type: Spontaneous
  Country: US (occurrence: US)
  Receive Date: 20230110
  Receipt Date: 20230110
  Transmission Date: 20230418
  Serious: No
  Sender: FDA-Public Use
  Company Number: US-drreddys-SPO/USA/22/0159062

PATIENT
  Age: 81 Year
  Sex: Male

DRUGS (3)
  1. LENALIDOMIDE [Suspect]
     Active Substance: LENALIDOMIDE
     Indication: Plasma cell myeloma in remission
     Dosage: TOOK ONE CAPSULE BY MOUTH EVERY DAY FOR 21 DAYS, FOLLOWED BY 7 DAYS OFF
     Route: 048
     Dates: start: 20221031
  2. OMEPRAZOLE [Concomitant]
     Active Substance: OMEPRAZOLE
     Indication: Product used for unknown indication
  3. IRON [Concomitant]
     Active Substance: IRON
     Indication: Product used for unknown indication

REACTIONS (2)
  - Product dose omission issue [Unknown]
  - Product administration interrupted [Unknown]
